FAERS Safety Report 20617020 (Version 1)
Quarter: 2022Q1

REPORT INFORMATION
  Report Type: Spontaneous
  Country: US (occurrence: None)
  Receive Date: 20220319
  Receipt Date: 20220319
  Transmission Date: 20220423
  Serious: No
  Sender: FDA-Public Use
  Company Number: None

PATIENT
  Age: 51 Year
  Sex: Female
  Weight: 78.3 kg

DRUGS (6)
  1. PAXLOVID [Suspect]
     Active Substance: NIRMATRELVIR\RITONAVIR
     Indication: COVID-19
     Dosage: OTHER QUANTITY : 3 TABLET(S);?FREQUENCY : EVERY 12 HOURS;?
     Route: 048
     Dates: start: 20220315, end: 20220316
  2. LEXAPRO [Concomitant]
     Active Substance: ESCITALOPRAM OXALATE
  3. OZEMPIC [Concomitant]
     Active Substance: SEMAGLUTIDE
  4. BENICAR [Concomitant]
     Active Substance: OLMESARTAN MEDOXOMIL
  5. IBUPROFEN [Concomitant]
     Active Substance: IBUPROFEN
  6. ASPIRIN [Concomitant]
     Active Substance: ASPIRIN

REACTIONS (3)
  - Oral pain [None]
  - Oropharyngeal pain [None]
  - Abdominal pain upper [None]

NARRATIVE: CASE EVENT DATE: 20220316
